FAERS Safety Report 26181735 (Version 1)
Quarter: 2025Q4

REPORT INFORMATION
  Report Type: Spontaneous
  Country: JP (occurrence: JP)
  Receive Date: 20251221
  Receipt Date: 20251221
  Transmission Date: 20260118
  Serious: Yes (Hospitalization)
  Sender: AMGEN
  Company Number: JP-AMGEN-JPNSP2025247961

PATIENT
  Age: 50 Year
  Sex: Female
  Weight: 91.4 kg

DRUGS (7)
  1. APREMILAST [Suspect]
     Active Substance: APREMILAST
     Indication: Benign familial pemphigus
     Dosage: UNK
     Route: 065
  2. APREMILAST [Suspect]
     Active Substance: APREMILAST
     Indication: Off label use
  3. CLOBETASOL [Concomitant]
     Active Substance: CLOBETASOL
     Dosage: DOSES OF UP TO 50 G/DAY
  4. BETAMETHASONE [Concomitant]
     Active Substance: BETAMETHASONE
     Dosage: 30 G PER DAY/15 G PER DAY/40-50 G/DAY,15G/DAY
  5. BETAMETHASONE DIPROPIONATE\CALCIPOTRIENE MONOHYDRATE [Concomitant]
     Active Substance: BETAMETHASONE DIPROPIONATE\CALCIPOTRIENE MONOHYDRATE
     Dosage: 0.5 MILLIGRAM/G
  6. HYDROCORTISONE [Concomitant]
     Active Substance: HYDROCORTISONE
     Dosage: 15 MG/DAY, 20 MG /DAY, 15 G/DAY
     Route: 048
  7. LEMBOREXANT [Concomitant]
     Active Substance: LEMBOREXANT
     Indication: Insomnia
     Dosage: UNK

REACTIONS (8)
  - Compression fracture [Unknown]
  - Asthenia [Unknown]
  - Pyrexia [Unknown]
  - Osteoporosis [Unknown]
  - Glycosylated haemoglobin abnormal [Unknown]
  - Oral candidiasis [Unknown]
  - Off label use [Unknown]
  - Glucose tolerance impaired [Unknown]
